FAERS Safety Report 15011204 (Version 1)
Quarter: 2018Q2

REPORT INFORMATION
  Report Type: Spontaneous
  Country: BR (occurrence: BR)
  Receive Date: 20180614
  Receipt Date: 20180614
  Transmission Date: 20180711
  Serious: Yes (Hospitalization, Other)
  Sender: FDA-Public Use
  Company Number: BR-JNJFOC-20180608431

PATIENT
  Age: 49 Year
  Sex: Female
  Weight: 70 kg

DRUGS (5)
  1. BIO-MANGUINHOS INFLIXIMABE [Suspect]
     Active Substance: INFLIXIMAB
     Indication: COLITIS
     Route: 042
     Dates: start: 201801, end: 20180412
  2. SULFASALAZINE. [Concomitant]
     Active Substance: SULFASALAZINE
     Route: 065
  3. BIO-MANGUINHOS INFLIXIMABE [Suspect]
     Active Substance: INFLIXIMAB
     Indication: COLITIS
     Dosage: BETWEEN 2009-2010
     Route: 042
  4. PREDNISONE. [Concomitant]
     Active Substance: PREDNISONE
     Route: 065
  5. FERROUS HYDROXIDE. [Concomitant]
     Active Substance: FERROUS HYDROXIDE
     Route: 065

REACTIONS (7)
  - Hodgkin^s disease [Unknown]
  - Infusion related reaction [Recovering/Resolving]
  - Hepatic cirrhosis [Unknown]
  - Varices oesophageal [Unknown]
  - Off label use [Unknown]
  - Colitis ulcerative [Unknown]
  - Inappropriate schedule of drug administration [Unknown]

NARRATIVE: CASE EVENT DATE: 201801
